FAERS Safety Report 21920735 (Version 1)
Quarter: 2023Q1

REPORT INFORMATION
  Report Type: Spontaneous
  Country: US (occurrence: None)
  Receive Date: 20230126
  Receipt Date: 20230126
  Transmission Date: 20230418
  Serious: Yes (Hospitalization)
  Sender: FDA-Public Use
  Company Number: None

PATIENT
  Sex: Female

DRUGS (2)
  1. VYNDAMAX [Suspect]
     Active Substance: TAFAMIDIS
     Indication: Dysphagia
     Dosage: FREQUENCY : DAILY;?
     Route: 048
     Dates: start: 20210406
  2. VYNDAMAX [Suspect]
     Active Substance: TAFAMIDIS
     Dosage: FREQUENCY : DAILY;?
     Route: 048

REACTIONS (1)
  - Hospitalisation [None]
